FAERS Safety Report 4535888-7 (Version None)
Quarter: 2004Q4

REPORT INFORMATION
  Report Type: 
  Country: None (occurrence: None)
  Receive Date: 20041223
  Receipt Date: 20040726
  Transmission Date: 20050328
  Serious: No
  Sender: FDA-Public Use
  Company Number: PHBS2004BR09809

PATIENT
  Age: 58 Year
  Sex: Female
  Weight: 45 kg

DRUGS (5)
  1. FORASEQ [Suspect]
     Indication: BRONCHITIS
     Dosage: 1 DF, BID
     Dates: start: 20040201, end: 20040701
  2. CALTRATE [Concomitant]
     Indication: OSTEOPOROSIS PROPHYLAXIS
     Dosage: 1 DF/DAY
     Route: 048
  3. VITAMIN D [Concomitant]
     Indication: OSTEOPOROSIS PROPHYLAXIS
     Dosage: 1 DF/DAY
     Route: 048
  4. TIBOLONE [Concomitant]
     Indication: HORMONE REPLACEMENT THERAPY
     Dosage: 1 DF/ DAY
     Route: 048
  5. HOMEOPATHIC PREPARATIONS [Concomitant]
     Indication: SINUSITIS

REACTIONS (5)
  - DEAFNESS [None]
  - EAR PRURITUS [None]
  - MUSCLE CRAMP [None]
  - SECRETION DISCHARGE [None]
  - SINUSITIS [None]
